FAERS Safety Report 24684183 (Version 1)
Quarter: 2024Q4

REPORT INFORMATION
  Report Type: Spontaneous
  Country: TW (occurrence: TW)
  Receive Date: 20241202
  Receipt Date: 20241202
  Transmission Date: 20250115
  Serious: Yes (Hospitalization, Other)
  Sender: NOVITIUM PHARMA
  Company Number: TW-NOVITIUMPHARMA-2024TWNVP02694

PATIENT
  Age: 67 Year
  Sex: Male

DRUGS (11)
  1. RISPERIDONE [Suspect]
     Active Substance: RISPERIDONE
     Indication: Agitation
     Dosage: GRADUALLY DOSE INCREASED TO 2 MG DAILY
  2. RISPERIDONE [Suspect]
     Active Substance: RISPERIDONE
     Indication: Jealous delusion
     Dosage: DOSE WAS DECREASED TO 1 MG DAILY
  3. RISPERIDONE [Suspect]
     Active Substance: RISPERIDONE
  4. PAROXETINE [Suspect]
     Active Substance: PAROXETINE
     Indication: Depressed mood
     Dosage: PAROXETINE 10 MG WAS TAKEN DOWN COMPLETELY
  5. PAROXETINE [Suspect]
     Active Substance: PAROXETINE
  6. NALTREXONE [Concomitant]
     Active Substance: NALTREXONE
     Indication: Alcohol use disorder
  7. QUETIAPINE [Concomitant]
     Active Substance: QUETIAPINE
     Indication: Agitation
  8. QUETIAPINE [Concomitant]
     Active Substance: QUETIAPINE
     Dosage: DOSE WAS SLOWLY INCREASED TO175 MG DAILY
  9. QUETIAPINE [Concomitant]
     Active Substance: QUETIAPINE
     Dosage: DOSE WAS REDUCED TO 100MG DAILY
  10. LORAZEPAM [Concomitant]
     Active Substance: LORAZEPAM
     Indication: Prophylaxis
     Dosage: TAPERED DOWN AFTER 2 WEEKS
  11. BIPERIDEN [Concomitant]
     Active Substance: BIPERIDEN
     Indication: Extrapyramidal disorder

REACTIONS (2)
  - Serotonin syndrome [Recovering/Resolving]
  - Drug interaction [Unknown]
